FAERS Safety Report 4914187-5 (Version None)
Quarter: 2006Q1

REPORT INFORMATION
  Report Type: 
  Country: None (occurrence: None)
  Receive Date: 20060213
  Receipt Date: 20060201
  Transmission Date: 20060701
  Serious: Yes (Life-Threatening, Hospitalization)
  Sender: FDA-Public Use
  Company Number: 221039

PATIENT
  Age: 82 Year
  Sex: Male

DRUGS (12)
  1. RITUXAN            (RITUXIMAB) [Suspect]
     Indication: NON-HODGKIN'S LYMPHOMA
     Dosage: 375 MG, INTRAVENOUS
     Route: 042
     Dates: start: 20040616, end: 20041124
  2. DOXORUBICIN HYDROCHLORIDE [Suspect]
     Indication: NON-HODGKIN'S LYMPHOMA
     Dosage: 90 MG, INTRAVENOUS
     Route: 042
     Dates: start: 20040618, end: 20041124
  3. ENDOXAN        (CYCLOPHOSPHAMIDE) [Suspect]
     Indication: NON-HODGKIN'S LYMPHOMA
     Dosage: 1350 MG, INTRAVENOUS
     Route: 042
     Dates: start: 20040618, end: 20041124
  4. ONCOVIN [Suspect]
     Indication: NON-HODGKIN'S LYMPHOMA
     Dosage: 2 MG, INTRAVENOUS
     Route: 042
     Dates: start: 20040618, end: 20041124
  5. PREDONINE             (PREDNISOLONE, PREDNISOLONE ACETATE, PREDNISOLON [Suspect]
     Indication: NON-HODGKIN'S LYMPHOMA
     Dosage: 100 MG, ORAL
     Route: 048
     Dates: start: 20040618, end: 20041124
  6. CALONAL (ACETAMINOPHEN) [Concomitant]
  7. SULFAMETHOXAZOLE + TRIMETHOPRIM [Concomitant]
  8. SELBEX (TEPRENONE) [Concomitant]
  9. OMEPRAZOLE [Concomitant]
  10. DIFLUCAN [Concomitant]
  11. PANTOSIN (BENZYL ALCOHOL, PANTETHINE) [Concomitant]
  12. MAGNESIUM OXIDE              (MAGNESIUM OXIDE) [Concomitant]

REACTIONS (3)
  - DUODENAL PERFORATION [None]
  - HERPES ZOSTER [None]
  - PNEUMONIA CYTOMEGALOVIRAL [None]
